FAERS Safety Report 9729833 (Version 1)
Quarter: 2013Q4

REPORT INFORMATION
  Report Type: Spontaneous
  Country: US (occurrence: US)
  Receive Date: 20131204
  Receipt Date: 20131204
  Transmission Date: 20140711
  Serious: Yes (Hospitalization)
  Sender: FDA-Public Use
  Company Number: US-BRISTOL-MYERS SQUIBB COMPANY-19850627

PATIENT
  Age: 35 Year
  Sex: Female
  Weight: 108.84 kg

DRUGS (4)
  1. ABILIFY TABS 2 MG [Suspect]
     Indication: BIPOLAR DISORDER
     Dosage: INT-UNK AND REST:2011. 1DF:SPLITS THE TAB AND TAKES
  2. SPIRIVA [Concomitant]
  3. ADVAIR [Concomitant]
  4. VERAMYST [Concomitant]

REACTIONS (13)
  - Chronic obstructive pulmonary disease [Unknown]
  - Wrong technique in drug usage process [Unknown]
  - Cognitive disorder [Unknown]
  - Tachyphrenia [Unknown]
  - Logorrhoea [Unknown]
  - Hyperglycaemia [Unknown]
  - Urine output increased [Unknown]
  - Weight increased [Unknown]
  - Asthenia [Unknown]
  - Fatigue [Unknown]
  - Rheumatoid arthritis [Not Recovered/Not Resolved]
  - Fungal infection [Unknown]
  - Lung disorder [Unknown]
